FAERS Safety Report 6909370-3 (Version None)
Quarter: 2010Q3

REPORT INFORMATION
  Report Type: 
  Country: None (occurrence: None)
  Receive Date: 20100805
  Receipt Date: 20100802
  Transmission Date: 20110219
  Serious: Yes (Hospitalization, Other)
  Sender: FDA-Public Use
  Company Number: US-RB-006016-10

PATIENT
  Age: 25 Year
  Sex: Male

DRUGS (1)
  1. SUBOXONE [Suspect]
     Indication: PRODUCT USED FOR UNKNOWN INDICATION
     Dosage: DOSING DETAILS UNKNOWN
     Route: 065

REACTIONS (8)
  - FEELING ABNORMAL [None]
  - GAIT DISTURBANCE [None]
  - INJURY [None]
  - INSOMNIA [None]
  - MYALGIA [None]
  - NAUSEA [None]
  - PAIN [None]
  - SEPSIS [None]
